FAERS Safety Report 18072835 (Version 1)
Quarter: 2020Q3

REPORT INFORMATION
  Report Type: Spontaneous
  Country: US (occurrence: US)
  Receive Date: 20200727
  Receipt Date: 20200727
  Transmission Date: 20201103
  Serious: No
  Sender: FDA-Public Use
  Company Number: None

PATIENT
  Age: 29 Year
  Sex: Female
  Weight: 60.75 kg

DRUGS (4)
  1. FLUCONASE [Concomitant]
  2. GABAPENTIN. [Concomitant]
     Active Substance: GABAPENTIN
  3. METHOCARBAMOL. [Suspect]
     Active Substance: METHOCARBAMOL
     Indication: MUSCLE SPASMS
     Route: 048
     Dates: start: 20200722, end: 20200725
  4. CLARITIN [Concomitant]
     Active Substance: LORATADINE

REACTIONS (6)
  - Pruritus [None]
  - Eye swelling [None]
  - Migraine [None]
  - Acne [None]
  - Vision blurred [None]
  - Urticaria [None]

NARRATIVE: CASE EVENT DATE: 20200722
